FAERS Safety Report 8652347 (Version 2)
Quarter: 2012Q4

REPORT INFORMATION
  Report Type: 
  Country: US (occurrence: US)
  Receive Date: 20120706
  Receipt Date: 20121017
  Transmission Date: 20130627
  Serious: Yes (Hospitalization)
  Sender: FDA-Public Use
  Company Number: US-BAYER-2012-065058

PATIENT
  Age: 20 Year
  Sex: Female
  Weight: 50.79 kg

DRUGS (2)
  1. OCELLA [Suspect]
     Dosage: 1 DF, QD
     Route: 048
     Dates: start: 2009, end: 2011
  2. YASMIN [Suspect]

REACTIONS (6)
  - Cholelithiasis [None]
  - Cholecystitis chronic [None]
  - Injury [None]
  - Pain [None]
  - Anxiety [None]
  - Anhedonia [None]
